FAERS Safety Report 6148935-6 (Version None)
Quarter: 2009Q2

REPORT INFORMATION
  Report Type: 
  Country: None (occurrence: None)
  Receive Date: 20090406
  Receipt Date: 20090331
  Transmission Date: 20091009
  Serious: Yes (Disabling)
  Sender: FDA-Public Use
  Company Number: OSCN-NO-0903L-0176

PATIENT
  Age: 65 Year
  Sex: Female

DRUGS (1)
  1. OMNISCAN [Suspect]
     Indication: DEEP VEIN THROMBOSIS
     Dosage: SINGLE DOSE, I.V.
     Route: 042
     Dates: start: 20030101, end: 20030101

REACTIONS (16)
  - ATRIAL FIBRILLATION [None]
  - DIVERTICULAR PERFORATION [None]
  - GASTRIC HAEMORRHAGE [None]
  - GLOMERULOSCLEROSIS [None]
  - HAEMATOMA [None]
  - LEFT VENTRICULAR HYPERTROPHY [None]
  - MYOPATHY [None]
  - NEPHROGENIC SYSTEMIC FIBROSIS [None]
  - NORMOCHROMIC NORMOCYTIC ANAEMIA [None]
  - PERICARDIAL EFFUSION [None]
  - PULMONARY HAEMORRHAGE [None]
  - REFUSAL OF TREATMENT BY PATIENT [None]
  - RENAL IMPAIRMENT [None]
  - SALIVARY GLAND DISORDER [None]
  - SCHIRMER'S TEST ABNORMAL [None]
  - SEPSIS [None]
